FAERS Safety Report 4556613-X (Version None)
Quarter: 2005Q1

REPORT INFORMATION
  Report Type: 
  Country: None (occurrence: None)
  Receive Date: 20050118
  Receipt Date: 20050104
  Transmission Date: 20050727
  Serious: Yes (Other)
  Sender: FDA-Public Use
  Company Number: 2005003695

PATIENT
  Sex: Female
  Weight: 86.1834 kg

DRUGS (9)
  1. CELEBREX [Suspect]
     Indication: ARTHRITIS
     Dosage: 200 MG (200 MG, 1 IN 1 D), ORAL
     Route: 048
  2. ENALAPRIL MALEATE [Concomitant]
  3. GEMFIBROZIL [Concomitant]
  4. DYAZIDE [Concomitant]
  5. RALOXIFENE HCL [Concomitant]
  6. OXAZEPAM [Concomitant]
  7. NORTRIPTYLINE HCL [Concomitant]
  8. FLUTICASONE PROPIONATE [Concomitant]
  9. POTASSIUM CHLORIDE [Concomitant]

REACTIONS (9)
  - ABASIA [None]
  - FIBROMYALGIA [None]
  - GALLBLADDER DISORDER [None]
  - HIATUS HERNIA [None]
  - INTERVERTEBRAL DISC DISORDER [None]
  - INTERVERTEBRAL DISC PROTRUSION [None]
  - NERVE COMPRESSION [None]
  - PAIN [None]
  - VOMITING [None]
